FAERS Safety Report 20347481 (Version 1)
Quarter: 2022Q1

REPORT INFORMATION
  Report Type: Spontaneous
  Country: US (occurrence: None)
  Receive Date: 20220118
  Receipt Date: 20220118
  Transmission Date: 20220423
  Serious: Yes (Hospitalization)
  Sender: FDA-Public Use
  Company Number: None

PATIENT
  Age: 90 Year
  Sex: Female

DRUGS (1)
  1. IBRANCE [Suspect]
     Active Substance: PALBOCICLIB
     Indication: Breast cancer female
     Dosage: FREQUENCY : DAILY;?
     Route: 048
     Dates: start: 20200205

REACTIONS (8)
  - Gastric ulcer [None]
  - Haematochezia [None]
  - Fungal infection [None]
  - Anaemia [None]
  - Weight decreased [None]
  - Dehydration [None]
  - Renal failure [None]
  - Therapy interrupted [None]

NARRATIVE: CASE EVENT DATE: 20220107
